FAERS Safety Report 8648751 (Version 3)
Quarter: 2012Q4

REPORT INFORMATION
  Report Type: 
  Country: JP (occurrence: JP)
  Receive Date: 20120703
  Receipt Date: 20120829
  Transmission Date: 20130627
  Serious: Yes (Hospitalization)
  Sender: FDA-Public Use
  Company Number: JP-ELI_LILLY_AND_COMPANY-JP201206007570

PATIENT
  Age: 80 Year
  Sex: Female
  Weight: 45 kg

DRUGS (7)
  1. CYMBALTA [Suspect]
     Indication: DIABETIC NEUROPATHY
     Dosage: 20 mg, qd
     Route: 048
     Dates: start: 20120608, end: 20120611
  2. BASEN [Concomitant]
     Dosage: 0.2 mg, tid
     Route: 048
  3. AMARYL [Concomitant]
     Dosage: 1 mg, qd
     Route: 048
  4. ZETIA [Concomitant]
     Dosage: 10 mg, qd
     Route: 048
  5. OLMETEC [Concomitant]
     Dosage: 20 mg, qd
     Route: 048
  6. AMLODIPINE                         /00972402/ [Concomitant]
     Dosage: 2.5 mg, qd
     Route: 048
  7. NEXIUM [Concomitant]
     Dosage: 20 mg, qd
     Route: 048

REACTIONS (1)
  - Inappropriate antidiuretic hormone secretion [Recovered/Resolved]
